FAERS Safety Report 5675038-7 (Version None)
Quarter: 2008Q1

REPORT INFORMATION
  Report Type: 
  Country: None (occurrence: None)
  Receive Date: 20080320
  Receipt Date: 20080306
  Transmission Date: 20080703
  Serious: Yes (Other)
  Sender: FDA-Public Use
  Company Number: GB-TEVA-168431ISR

PATIENT
  Age: 38 Year
  Sex: Female

DRUGS (6)
  1. FUROSEMIDE [Suspect]
  2. PREDNISOLONE [Suspect]
     Indication: ASTHMA
  3. ALBUTEROL [Suspect]
     Indication: ASTHMA
     Route: 055
  4. ASPIRIN [Suspect]
  5. ENOXAPARIN SODIUM [Suspect]
  6. UNKNOWN BRONCHODILATOR [Suspect]
     Route: 055

REACTIONS (18)
  - AKINESIA [None]
  - ANXIETY [None]
  - CARDIAC DISORDER [None]
  - CARDIOMEGALY [None]
  - CHEST PAIN [None]
  - COUGH [None]
  - DRUG EXPOSURE DURING PREGNANCY [None]
  - DYSKINESIA [None]
  - EJECTION FRACTION DECREASED [None]
  - EMOTIONAL DISTRESS [None]
  - MITRAL VALVE INCOMPETENCE [None]
  - OEDEMA PERIPHERAL [None]
  - PERIPARTUM CARDIOMYOPATHY [None]
  - SINUS RHYTHM [None]
  - TACHYCARDIA [None]
  - THROMBOSIS [None]
  - TRICUSPID VALVE INCOMPETENCE [None]
  - VENTRICULAR DYSFUNCTION [None]
